FAERS Safety Report 13884324 (Version 2)
Quarter: 2017Q3

REPORT INFORMATION
  Report Type: Spontaneous
  Country: CN (occurrence: CN)
  Receive Date: 20170821
  Receipt Date: 20170821
  Transmission Date: 20171127
  Serious: Yes (Other)
  Sender: FDA-Public Use
  Company Number: CN-009507513-1708CHN008553

PATIENT
  Age: 47 Year
  Sex: Female
  Weight: 53 kg

DRUGS (3)
  1. SINGULAIR [Suspect]
     Active Substance: MONTELUKAST SODIUM
     Indication: BRONCHITIS
     Dosage: 10 MG, QD
     Route: 048
     Dates: start: 20170202, end: 20170203
  2. CHLORPHENIRAMINE MALEATE (+) DEXTROMETHORPHAN HYDROBROMIDE (+) PSEUDOE [Concomitant]
     Indication: BRONCHITIS
     Dosage: 10 ML, UNK
     Route: 048
     Dates: start: 20170202, end: 20170210
  3. CLINDAMYCIN PALMITATE HYDROCHLORIDE. [Concomitant]
     Active Substance: CLINDAMYCIN PALMITATE HYDROCHLORIDE
     Indication: BRONCHITIS
     Dosage: 150 MG, TID
     Route: 048
     Dates: start: 20170202, end: 20170210

REACTIONS (2)
  - Dysphoria [Recovering/Resolving]
  - Insomnia [Recovering/Resolving]

NARRATIVE: CASE EVENT DATE: 20170202
